FAERS Safety Report 16726182 (Version 1)
Quarter: 2019Q3

REPORT INFORMATION
  Report Type: Spontaneous
  Country: GB (occurrence: GB)
  Receive Date: 20190821
  Receipt Date: 20190821
  Transmission Date: 20191005
  Serious: Yes (Other)
  Sender: FDA-Public Use
  Company Number: PHHY2019GB190247

PATIENT
  Age: 48 Year
  Sex: Male

DRUGS (1)
  1. IMATINIB. [Suspect]
     Active Substance: IMATINIB MESYLATE
     Indication: CHORDOMA
     Dosage: UNK
     Route: 065

REACTIONS (5)
  - Recurrent cancer [Unknown]
  - Chordoma [Unknown]
  - Metastases to lung [Unknown]
  - Metastases to spine [Unknown]
  - Product use in unapproved indication [Unknown]
